FAERS Safety Report 11740109 (Version 2)
Quarter: 2015Q4

REPORT INFORMATION
  Report Type: Spontaneous
  Country: US (occurrence: US)
  Receive Date: 20151110
  Receipt Date: 20151120
  Transmission Date: 20160304
  Serious: No
  Sender: FDA-Public Use
  Company Number: US-ELI_LILLY_AND_COMPANY-US201202002582

PATIENT
  Age: 74 Year
  Sex: Female

DRUGS (6)
  1. FORTEO [Suspect]
     Active Substance: TERIPARATIDE
     Dosage: 20 UG, QD
     Route: 065
     Dates: start: 2012
  2. CENTRUM SELECT 50+ [Concomitant]
     Active Substance: VITAMINS
  3. FORTEO [Suspect]
     Active Substance: TERIPARATIDE
     Indication: OSTEOPOROSIS
     Dosage: 20 UG, QD
     Route: 065
     Dates: start: 20111227
  4. VITAMIN D [Concomitant]
     Active Substance: CHOLECALCIFEROL
  5. EFFEXOR [Concomitant]
     Active Substance: VENLAFAXINE HYDROCHLORIDE
     Indication: DEPRESSION
  6. FORTEO [Suspect]
     Active Substance: TERIPARATIDE
     Dosage: 20 UG, QD
     Route: 065
     Dates: end: 2012

REACTIONS (14)
  - Sleep disorder due to a general medical condition [Unknown]
  - Back disorder [Not Recovered/Not Resolved]
  - Face injury [Unknown]
  - Eye contusion [Unknown]
  - Pain [Unknown]
  - Sweat gland disorder [Unknown]
  - Intentional device misuse [Recovered/Resolved]
  - Fatigue [Unknown]
  - Pain [Not Recovered/Not Resolved]
  - Blood calcium increased [Unknown]
  - Medication error [Unknown]
  - Decreased appetite [Unknown]
  - Fall [Recovered/Resolved]
  - Pain in extremity [Unknown]

NARRATIVE: CASE EVENT DATE: 201112
